FAERS Safety Report 8947779 (Version 1)
Quarter: 2012Q4

REPORT INFORMATION
  Report Type: 
  Country: DE (occurrence: DE)
  Receive Date: 20121204
  Receipt Date: 20121204
  Transmission Date: 20130627
  Serious: Yes (Death, Life-Threatening, Hospitalization, Other)
  Sender: FDA-Public Use
  Company Number: DE-SANOFI-AVENTIS-2012SA085982

PATIENT
  Age: 84 Year
  Sex: Female
  Weight: 64 kg

DRUGS (5)
  1. CLEXANE [Suspect]
     Indication: THROMBOSIS PROPHYLAXIS
     Route: 058
     Dates: start: 20121118, end: 20121120
  2. ISOSORBIDE MONONITRATE [Concomitant]
     Indication: CORONARY HEART DISEASE
     Route: 048
     Dates: end: 201211
  3. PANTOPRAZOLE [Concomitant]
     Indication: PROPHYLAXIS
     Route: 048
     Dates: end: 201211
  4. VALSARTAN [Concomitant]
     Indication: HYPERTENSION
     Route: 048
     Dates: end: 201211
  5. AMIODARON [Concomitant]
     Indication: ATRIAL FIBRILLATION
     Route: 048
     Dates: end: 201211

REACTIONS (2)
  - Death [Fatal]
  - Post procedural haemorrhage [Fatal]
